FAERS Safety Report 4310054-9 (Version None)
Quarter: 2004Q1

REPORT INFORMATION
  Report Type: 
  Country: None (occurrence: None)
  Receive Date: 20040301
  Receipt Date: 20031117
  Transmission Date: 20041129
  Serious: No
  Sender: FDA-Public Use
  Company Number: WAES 0310USA01461

PATIENT
  Age: 62 Year
  Sex: Female
  Weight: 68.4932 kg

DRUGS (4)
  1. ZETIA [Suspect]
     Indication: HYPERLIPIDAEMIA
     Dosage: 10 MG/DAILY/PO
     Route: 048
     Dates: start: 20030716
  2. ACTONEL [Concomitant]
  3. LIPITOR [Concomitant]
  4. PREVACID [Concomitant]

REACTIONS (1)
  - ALOPECIA [None]
